FAERS Safety Report 7812430-6 (Version None)
Quarter: 2011Q4

REPORT INFORMATION
  Report Type: 
  Country: None (occurrence: None)
  Receive Date: 20111013
  Receipt Date: 20111007
  Transmission Date: 20120403
  Serious: Yes (Other)
  Sender: FDA-Public Use
  Company Number: RU-PFIZER INC-2011234687

PATIENT
  Sex: Female

DRUGS (2)
  1. TIMOLOL [Concomitant]
     Indication: OPEN ANGLE GLAUCOMA
  2. XALATAN [Suspect]
     Indication: OPEN ANGLE GLAUCOMA
     Dosage: 1 GTT IN EACH EYE, 1X/DAY IN THE EVENING
     Route: 047

REACTIONS (3)
  - CARDIAC DISORDER [None]
  - TREMOR [None]
  - RESPIRATORY DISORDER [None]
